FAERS Safety Report 9097369 (Version 2)
Quarter: 2013Q1

REPORT INFORMATION
  Report Type: Report from Study
  Country: JP (occurrence: JP)
  Receive Date: 20130212
  Receipt Date: 20130221
  Transmission Date: 20140127
  Serious: Yes (Hospitalization)
  Sender: FDA-Public Use
  Company Number: JP-PFIZER INC-2012270925

PATIENT
  Age: 39 Year
  Sex: Female
  Weight: 48 kg

DRUGS (4)
  1. XALKORI [Suspect]
     Indication: NON-SMALL CELL LUNG CANCER
     Dosage: 250 MG, 2X/DAY
     Route: 048
     Dates: start: 20120530, end: 20120723
  2. TRAMAL [Concomitant]
     Dosage: 25 MG, 4X/DAY
     Route: 048
     Dates: start: 20120319
  3. NOVAMIN [Concomitant]
     Dosage: 5 MG, 3X/DAY
     Route: 048
     Dates: start: 20120314
  4. RIVOTRIL [Concomitant]
     Dosage: 0.5 MG, 1X/DAY
     Route: 048
     Dates: start: 20120314

REACTIONS (1)
  - Gastroenteritis [Recovering/Resolving]
